FAERS Safety Report 7518466-7 (Version None)
Quarter: 2011Q2

REPORT INFORMATION
  Report Type: 
  Country: None (occurrence: None)
  Receive Date: 20110601
  Receipt Date: 20110601
  Transmission Date: 20111010
  Serious: Yes (Other)
  Sender: FDA-Public Use
  Company Number: None

PATIENT
  Age: 56 Year
  Sex: Female
  Weight: 66 kg

DRUGS (1)
  1. OXALIPLATIN [Suspect]
     Indication: RECTAL CANCER
     Dosage: 114MG CONTINUOUS IV
     Route: 042
     Dates: start: 20110428, end: 20110428

REACTIONS (3)
  - ERYTHEMA [None]
  - PRURITUS GENERALISED [None]
  - COUGH [None]
